FAERS Safety Report 6649483-7 (Version None)
Quarter: 2010Q1

REPORT INFORMATION
  Report Type: 
  Country: None (occurrence: None)
  Receive Date: 20100324
  Receipt Date: 20100318
  Transmission Date: 20100710
  Serious: Yes (Other)
  Sender: FDA-Public Use
  Company Number: US-GILEAD-2010-0027638

PATIENT
  Sex: Male

DRUGS (1)
  1. LETAIRIS [Suspect]
     Indication: PULMONARY ARTERIAL HYPERTENSION
     Route: 048
     Dates: start: 20091118, end: 20100216

REACTIONS (5)
  - HYPERCAPNIA [None]
  - LOSS OF CONSCIOUSNESS [None]
  - POLYCYTHAEMIA [None]
  - TREMOR [None]
  - VENTILATION PERFUSION MISMATCH [None]
